FAERS Safety Report 15655874 (Version 1)
Quarter: 2018Q4

REPORT INFORMATION
  Report Type: Spontaneous
  Country: JP (occurrence: JP)
  Receive Date: 20181126
  Receipt Date: 20181126
  Transmission Date: 20190205
  Serious: Yes (Hospitalization, Other)
  Sender: FDA-Public Use
  Company Number: JP-009507513-1811JPN007498

PATIENT
  Age: 56 Year
  Sex: Male

DRUGS (14)
  1. BEZAFIBRATE [Concomitant]
     Active Substance: BEZAFIBRATE
     Dosage: UNSPECIFIED FORM
     Route: 048
  2. NIFEDIPINE. [Concomitant]
     Active Substance: NIFEDIPINE
     Dosage: UNSPECIFIED FORM
     Route: 048
  3. NITOROL-R [Concomitant]
     Dosage: UNSPECIFIED FORM
     Route: 048
     Dates: end: 20171121
  4. SITAGLIPTIN PHOSPHATE [Suspect]
     Active Substance: SITAGLIPTIN PHOSPHATE
     Indication: TYPE 2 DIABETES MELLITUS
     Dosage: 50 MILLIGRAM,EVERYDAY
     Route: 048
  5. BUFFERIN [Concomitant]
     Active Substance: ASPIRIN
     Dosage: UNSPECIFIED FORM
     Route: 048
     Dates: end: 20171115
  6. METGLUCO [Concomitant]
     Active Substance: METFORMIN HYDROCHLORIDE
     Dosage: UNSPECIFIED FORM
     Route: 048
  7. CRESTOR [Concomitant]
     Active Substance: ROSUVASTATIN CALCIUM
     Dosage: UNSPECIFIED FORM
     Route: 048
     Dates: end: 20171121
  8. TIZANIDINE HYDROCHLORIDE. [Concomitant]
     Active Substance: TIZANIDINE HYDROCHLORIDE
     Dosage: UNSPECIFIED FORM
     Route: 048
  9. ICOSAPENT ETHYL [Concomitant]
     Active Substance: ICOSAPENT ETHYL
     Dosage: UNSPECIFIED FORM
     Route: 048
  10. PLAVIX [Concomitant]
     Active Substance: CLOPIDOGREL BISULFATE
     Dosage: UNSPECIFIED FORM
     Route: 048
     Dates: end: 20170509
  11. VALSARTAN. [Concomitant]
     Active Substance: VALSARTAN
     Dosage: UNSPECIFIED FORM
     Route: 048
  12. VOGLIBOSE [Concomitant]
     Active Substance: VOGLIBOSE
     Dosage: UNSPECIFIED FORM
     Route: 048
  13. FORXIGA [Suspect]
     Active Substance: DAPAGLIFLOZIN
     Indication: TYPE 2 DIABETES MELLITUS
     Dosage: 5 MILLIGRAM, EVERYDAY
     Route: 048
     Dates: start: 20151006
  14. ATENOLOL. [Concomitant]
     Active Substance: ATENOLOL
     Dosage: UNSPECIFIED FORM
     Route: 048

REACTIONS (1)
  - Angina unstable [Recovered/Resolved]

NARRATIVE: CASE EVENT DATE: 20171115
